FAERS Safety Report 25343027 (Version 2)
Quarter: 2025Q3

REPORT INFORMATION
  Report Type: Spontaneous
  Country: JP (occurrence: JP)
  Receive Date: 20250521
  Receipt Date: 20250707
  Transmission Date: 20251021
  Serious: Yes (Death, Other)
  Sender: JAZZ
  Company Number: JP-JAZZ PHARMACEUTICALS-2025-JP-012979

PATIENT
  Age: 8 Decade
  Sex: Female

DRUGS (1)
  1. VYXEOS [Suspect]
     Active Substance: CYTARABINE\DAUNORUBICIN
     Indication: Acute myeloid leukaemia
     Route: 042
     Dates: start: 20250115, end: 2025

REACTIONS (3)
  - Sepsis [Fatal]
  - Febrile neutropenia [Unknown]
  - Bacterial infection [Unknown]

NARRATIVE: CASE EVENT DATE: 20250101
